FAERS Safety Report 9980944 (Version 1)
Quarter: 2014Q1

REPORT INFORMATION
  Report Type: Spontaneous
  Country: GB (occurrence: None)
  Receive Date: 20140305
  Receipt Date: 20140305
  Transmission Date: 20141002
  Serious: Yes (Hospitalization)
  Sender: FDA-Public Use
  Company Number: AUR-APL-2014-012148

PATIENT
  Sex: Male

DRUGS (6)
  1. PRAMIPEXOLE [Suspect]
     Indication: RESTLESS LEGS SYNDROME
     Route: 048
     Dates: start: 20140203, end: 20140204
  2. BRIMONIDINE (BRIMONIDINE) [Concomitant]
  3. BRINZOLAMIDE (BRINZOLAMIDE) [Concomitant]
  4. CARMELLOSE (CARMELLOSE) [Concomitant]
  5. LATANOPROST (LATANOPROST) (NONE) [Concomitant]
  6. TIMOLOL (TIMOLOL) (NONE) [Concomitant]

REACTIONS (4)
  - Haemorrhage intracranial [None]
  - Fall [None]
  - Head injury [None]
  - Haemoglobin decreased [None]
